FAERS Safety Report 7890000-1 (Version None)
Quarter: 2011Q4

REPORT INFORMATION
  Report Type: 
  Country: None (occurrence: None)
  Receive Date: 20111103
  Receipt Date: 20111024
  Transmission Date: 20120403
  Serious: Yes (Other)
  Sender: FDA-Public Use
  Company Number: PHHY2011DE75813

PATIENT
  Sex: Female
  Weight: 50 kg

DRUGS (1)
  1. FEMARA [Suspect]
     Indication: BREAST CANCER
     Route: 048
     Dates: start: 20101201

REACTIONS (2)
  - VISUAL IMPAIRMENT [None]
  - VITREOUS OPACITIES [None]
